FAERS Safety Report 7540222-4 (Version None)
Quarter: 2011Q2

REPORT INFORMATION
  Report Type: 
  Country: None (occurrence: None)
  Receive Date: 20110610
  Receipt Date: 20110520
  Transmission Date: 20111010
  Serious: No
  Sender: FDA-Public Use
  Company Number: US-JNJFOC-20110509931

PATIENT
  Sex: Female

DRUGS (4)
  1. LITHIUM CARBONATE [Concomitant]
     Indication: SCHIZOPHRENIA
     Route: 065
  2. COGENTIN [Concomitant]
  3. INVEGA SUSTENNA [Suspect]
     Indication: SCHIZOPHRENIA
     Route: 030
     Dates: start: 20110101
  4. ATIVAN [Concomitant]

REACTIONS (3)
  - HALLUCINATION, AUDITORY [None]
  - PRODUCT QUALITY ISSUE [None]
  - HALLUCINATION [None]
